FAERS Safety Report 5218273-4 (Version None)
Quarter: 2007Q1

REPORT INFORMATION
  Report Type: 
  Country: None (occurrence: None)
  Receive Date: 20061130
  Receipt Date: 20060530
  Transmission Date: 20070707
  Serious: Yes (Hospitalization, Other)
  Sender: FDA-Public Use
  Company Number: US200603000723

PATIENT
  Age: 49 Year
  Sex: Male
  Weight: 67.1 kg

DRUGS (20)
  1. ZYPREXA [Suspect]
     Indication: SCHIZOPHRENIA
     Dosage: SEE IMAGE
     Route: 048
     Dates: start: 19970725, end: 19971001
  2. ZYPREXA [Suspect]
     Indication: SCHIZOPHRENIA
     Dosage: SEE IMAGE
     Route: 048
     Dates: start: 19971001, end: 19980701
  3. ZYPREXA [Suspect]
     Indication: SCHIZOPHRENIA
     Dosage: SEE IMAGE
     Route: 048
     Dates: start: 19981201, end: 19991201
  4. ZYPREXA [Suspect]
     Indication: SCHIZOPHRENIA
     Dosage: SEE IMAGE
     Route: 048
     Dates: start: 19991201, end: 20010301
  5. ZYPREXA [Suspect]
     Indication: SCHIZOPHRENIA
     Dosage: SEE IMAGE
     Route: 048
     Dates: start: 20010401, end: 20020401
  6. ZYPREXA [Suspect]
     Indication: SCHIZOPHRENIA
     Dosage: SEE IMAGE
     Route: 048
     Dates: start: 20020501, end: 20020701
  7. ZYPREXA [Suspect]
     Indication: SCHIZOPHRENIA
     Dosage: SEE IMAGE
     Route: 048
     Dates: start: 20020801, end: 20031001
  8. ZYPREXA [Suspect]
     Indication: SCHIZOPHRENIA
     Dosage: SEE IMAGE
     Route: 048
     Dates: start: 20031001, end: 20040801
  9. SERAX [Concomitant]
  10. METOPROLOL SUCCINATE [Concomitant]
  11. ABILIFY [Concomitant]
  12. SEROQUEL [Concomitant]
  13. HALOPERIDOL [Concomitant]
  14. REMERON [Concomitant]
  15. SERZONE [Concomitant]
  16. LEXAPRO /USA/ (ESCITALOPRAM) [Concomitant]
  17. TRAZODONE HCL [Concomitant]
  18. INSULIN [Concomitant]
  19. METFORMIN [Concomitant]
  20. ROSIGLITAZONE [Concomitant]

REACTIONS (5)
  - BLOOD CHOLESTEROL INCREASED [None]
  - BLOOD GLUCOSE INCREASED [None]
  - DIABETES MELLITUS INSULIN-DEPENDENT [None]
  - HYPERTENSION [None]
  - KETOACIDOSIS [None]
